FAERS Safety Report 4312762-2 (Version None)
Quarter: 2004Q1

REPORT INFORMATION
  Report Type: 
  Country: None (occurrence: None)
  Receive Date: 20040305
  Receipt Date: 20040226
  Transmission Date: 20041129
  Serious: Yes (Death)
  Sender: FDA-Public Use
  Company Number: 2003BL009125

PATIENT
  Age: 81 Year
  Sex: Male
  Weight: 56.6996 kg

DRUGS (6)
  1. ATROPINE SULFATE OPHTHALMIC SOLUTION USP, 1% [Suspect]
     Indication: SALIVARY HYPERSECRETION
     Dosage: 1 GTT; EVERY 4 HOURS; SUBLINGUAL
     Route: 060
     Dates: start: 20031118, end: 20031119
  2. PRILOSEC [Concomitant]
  3. METOPROLOL [Concomitant]
  4. DIGOXIN [Concomitant]
  5. DUONEB INHALER [Concomitant]
  6. UNSPECIFIED PAIN MEDICATION [Concomitant]

REACTIONS (6)
  - CHILLS [None]
  - DYSPNOEA [None]
  - FEELING COLD [None]
  - HEART RATE DECREASED [None]
  - HEART RATE INCREASED [None]
  - SOMNOLENCE [None]
